FAERS Safety Report 6708835-7 (Version None)
Quarter: 2010Q2

REPORT INFORMATION
  Report Type: 
  Country: None (occurrence: None)
  Receive Date: 20100503
  Receipt Date: 20100503
  Transmission Date: 20101027
  Serious: Yes (Other)
  Sender: FDA-Public Use
  Company Number: None

PATIENT
  Sex: Female
  Weight: 109.7705 kg

DRUGS (1)
  1. DILANTIN [Suspect]
     Indication: CONVULSION
     Dosage: 100 MG 2AM 2PM 2AM 3PM ALTERNATING WITH ORAL
     Route: 048
     Dates: start: 20091013, end: 20100421

REACTIONS (3)
  - ANTICONVULSANT DRUG LEVEL BELOW THERAPEUTIC [None]
  - CONVULSION [None]
  - HUMERUS FRACTURE [None]
